FAERS Safety Report 9686274 (Version 1)
Quarter: 2013Q4

REPORT INFORMATION
  Report Type: Spontaneous
  Country: US (occurrence: US)
  Receive Date: 20131113
  Receipt Date: 20131113
  Transmission Date: 20140711
  Serious: Yes (Death, Hospitalization)
  Sender: FDA-Public Use
  Company Number: PHHY2013US126354

PATIENT
  Age: 59 Year
  Sex: Female

DRUGS (4)
  1. DOCETAXEL [Suspect]
     Indication: UTERINE CANCER
  2. DOCETAXEL [Suspect]
     Indication: METASTASES TO SKIN
  3. CARBOPLATIN [Suspect]
     Indication: UTERINE CANCER
  4. CARBOPLATIN [Suspect]
     Indication: METASTASES TO SKIN

REACTIONS (5)
  - Death [Fatal]
  - Pulmonary embolism [Recovered/Resolved]
  - Tumour lysis syndrome [Recovered/Resolved]
  - Skin disorder [Recovered/Resolved]
  - Infection [Recovered/Resolved]
